FAERS Safety Report 17391183 (Version 1)
Quarter: 2020Q1

REPORT INFORMATION
  Report Type: Spontaneous
  Country: DE (occurrence: DE)
  Receive Date: 20200207
  Receipt Date: 20200207
  Transmission Date: 20200409
  Serious: Yes (Disabling, Other)
  Sender: FDA-Public Use
  Company Number: DE-ROCHE-2540401

PATIENT
  Age: 63 Year
  Sex: Female

DRUGS (27)
  1. TOCILIZUMAB. [Suspect]
     Active Substance: TOCILIZUMAB
     Indication: AUTOIMMUNE DISORDER
     Route: 042
     Dates: start: 2011
  2. PREDNISOLONE. [Concomitant]
     Active Substance: PREDNISOLONE
     Dosage: DAILY
     Route: 065
     Dates: start: 2014
  3. ACARA [Concomitant]
     Route: 065
     Dates: start: 2019
  4. URSOFALK [Concomitant]
     Active Substance: URSODIOL
     Route: 065
     Dates: start: 2008
  5. ANAKINRA [Concomitant]
     Active Substance: ANAKINRA
     Indication: AUTOIMMUNE DISORDER
     Route: 065
     Dates: start: 201108, end: 201310
  6. CANAKINUMAB. [Concomitant]
     Active Substance: CANAKINUMAB
     Route: 065
  7. CYCLOPHOSPHAMIDE. [Concomitant]
     Active Substance: CYCLOPHOSPHAMIDE
     Route: 065
     Dates: start: 2018
  8. PREDNISOLONE. [Concomitant]
     Active Substance: PREDNISOLONE
     Indication: POLYARTHRITIS
     Route: 065
     Dates: start: 2011
  9. MTX [METHOTREXATE] [Concomitant]
     Active Substance: METHOTREXATE SODIUM
     Indication: AUTOIMMUNE DISORDER
     Route: 065
     Dates: start: 2011
  10. PREDNISOLONE. [Concomitant]
     Active Substance: PREDNISOLONE
     Dosage: DAILY
     Route: 065
     Dates: start: 2019
  11. CANAKINUMAB. [Concomitant]
     Active Substance: CANAKINUMAB
     Route: 065
  12. KEVZARA [Concomitant]
     Active Substance: SARILUMAB
     Route: 065
     Dates: start: 2017
  13. CYCLOPHOSPHAMIDE. [Concomitant]
     Active Substance: CYCLOPHOSPHAMIDE
     Dosage: 9 TIMES
     Route: 065
     Dates: start: 2017
  14. PANTOZOL [Concomitant]
     Active Substance: PANTOPRAZOLE SODIUM
     Route: 065
     Dates: start: 2019
  15. MYCOPHENOLATE MOFETIL. [Suspect]
     Active Substance: MYCOPHENOLATE MOFETIL
     Indication: POLYARTHRITIS
     Route: 065
     Dates: start: 201010
  16. CANAKINUMAB. [Concomitant]
     Active Substance: CANAKINUMAB
     Indication: AUTOIMMUNE DISORDER
     Route: 065
     Dates: start: 201404, end: 201412
  17. CANAKINUMAB. [Concomitant]
     Active Substance: CANAKINUMAB
     Route: 065
     Dates: start: 201512
  18. CANAKINUMAB. [Concomitant]
     Active Substance: CANAKINUMAB
     Route: 065
     Dates: start: 2016
  19. CYCLOSPORIN A [Concomitant]
     Active Substance: CYCLOSPORINE
     Indication: AUTOIMMUNE DISORDER
     Route: 065
     Dates: start: 201310
  20. PREGABALIN. [Concomitant]
     Active Substance: PREGABALIN
     Route: 065
     Dates: start: 2019
  21. AZITHROMYCIN ANHYDROUS. [Concomitant]
     Active Substance: AZITHROMYCIN ANHYDROUS
     Route: 065
     Dates: start: 201010
  22. INFLIXIMAB [Concomitant]
     Active Substance: INFLIXIMAB
     Indication: AUTOIMMUNE DISORDER
     Route: 065
     Dates: start: 2014, end: 201406
  23. OLUMIANT [Concomitant]
     Active Substance: BARICITINIB
     Route: 065
     Dates: start: 2017
  24. PREDNISOLONE. [Concomitant]
     Active Substance: PREDNISOLONE
     Route: 065
     Dates: start: 2011
  25. PREDNISOLONE. [Concomitant]
     Active Substance: PREDNISOLONE
     Dosage: DAILY
     Route: 065
     Dates: start: 2015
  26. MTX [METHOTREXATE] [Concomitant]
     Active Substance: METHOTREXATE SODIUM
     Dosage: COMBINATION WITH CANAKINUMAB
     Route: 065
     Dates: start: 201404, end: 201412
  27. ENBREL [Concomitant]
     Active Substance: ETANERCEPT
     Indication: AUTOIMMUNE DISORDER
     Route: 065
     Dates: start: 2013, end: 2014

REACTIONS (10)
  - Amyloidosis [Unknown]
  - Bone marrow disorder [Unknown]
  - Urticaria [Unknown]
  - Hypersensitivity [Unknown]
  - Dermatitis allergic [Unknown]
  - Sepsis [Unknown]
  - Tracheobronchitis [Unknown]
  - Granulocyte count increased [Unknown]
  - Osteoporosis [Unknown]
  - Septic shock [Unknown]

NARRATIVE: CASE EVENT DATE: 2011
